FAERS Safety Report 7908365-0 (Version None)
Quarter: 2011Q4

REPORT INFORMATION
  Report Type: 
  Country: None (occurrence: None)
  Receive Date: 20111111
  Receipt Date: 20111103
  Transmission Date: 20120403
  Serious: Yes (Death, Other)
  Sender: FDA-Public Use
  Company Number: FR-CELGENEUS-056-50794-11061479

PATIENT

DRUGS (6)
  1. VIDAZA [Suspect]
     Dosage: 75 MILLIGRAM/SQ. METER
     Route: 065
  2. VIDAZA [Suspect]
  3. PANOBINOSTAT [Suspect]
     Route: 048
  4. PANOBINOSTAT [Suspect]
  5. VIDAZA [Suspect]
  6. PANOBINOSTAT [Suspect]

REACTIONS (13)
  - ATRIAL FIBRILLATION [None]
  - EMBOLISM VENOUS [None]
  - VOMITING [None]
  - DIARRHOEA [None]
  - THROMBOCYTOPENIA [None]
  - FEBRILE NEUTROPENIA [None]
  - ASTHENIA [None]
  - NAUSEA [None]
  - ARTHRITIS [None]
  - FATIGUE [None]
  - DEATH [None]
  - SEPTIC SHOCK [None]
  - MYELODYSPLASTIC SYNDROME [None]
